FAERS Safety Report 5470893-8 (Version None)
Quarter: 2007Q3

REPORT INFORMATION
  Report Type: 
  Country: None (occurrence: None)
  Receive Date: 20070928
  Receipt Date: 20070924
  Transmission Date: 20080115
  Serious: Yes (Hospitalization, Other)
  Sender: FDA-Public Use
  Company Number: FR-BRISTOL-MYERS SQUIBB COMPANY-13519806

PATIENT
  Age: 58 Year
  Sex: Male
  Weight: 61 kg

DRUGS (9)
  1. SUSTIVA [Suspect]
     Indication: HIV TEST POSITIVE
     Route: 048
     Dates: start: 20060831
  2. TRUVADA [Suspect]
     Indication: HIV TEST POSITIVE
     Dates: start: 20060831
  3. RIFATER [Concomitant]
     Dates: start: 20060728
  4. ETHAMBUTOL HYDROCHLORIDE [Concomitant]
     Dates: start: 20060728
  5. ZECLAR [Concomitant]
     Indication: ATYPICAL MYCOBACTERIAL INFECTION
     Dates: start: 20060628
  6. CORTANCYL [Concomitant]
     Indication: ATYPICAL MYCOBACTERIAL INFECTION
     Dates: start: 20060810
  7. ZELITREX [Concomitant]
     Dates: start: 20060707
  8. BACTRIM [Concomitant]
     Dosage: DOSAGE 40MG/80MG/D
     Dates: start: 20060707
  9. TRIFLUCAN [Concomitant]
     Dates: start: 20060713

REACTIONS (4)
  - CRYPTOCOCCOSIS [None]
  - IMMUNE RECONSTITUTION SYNDROME [None]
  - PYREXIA [None]
  - VOMITING [None]
